FAERS Safety Report 12072418 (Version 1)
Quarter: 2016Q1

REPORT INFORMATION
  Report Type: Report from Study
  Country: US (occurrence: US)
  Receive Date: 20160212
  Receipt Date: 20160212
  Transmission Date: 20160526
  Serious: Yes (Hospitalization)
  Sender: FDA-Public Use
  Company Number: US-ASTELLAS-2016US005065

PATIENT
  Age: 79 Year
  Sex: Male

DRUGS (3)
  1. ERLOTINIB [Suspect]
     Active Substance: ERLOTINIB
     Indication: PANCREATIC CARCINOMA
     Dosage: 150 MG, ONCE DAILY GIVEN ON DAYS 1-5, 8-12 AND 15-26 OF EACH 28 DAY CYCLE
     Route: 048
     Dates: start: 20061103
  2. BEVACIZUMAB [Suspect]
     Active Substance: BEVACIZUMAB
     Indication: PANCREATIC CARCINOMA
     Dosage: 10 MG/KG, CYCLIC, CYCLE 1 GIVEN OVER 60-90 MINUTES ON DAYS 1 AND 15, CYCLE 2+GIVEN OVER 30-90 MINUTE
     Route: 042
     Dates: start: 20061103
  3. GEMCITABINE [Suspect]
     Active Substance: GEMCITABINE\GEMCITABINE HYDROCHLORIDE
     Indication: PANCREATIC CARCINOMA
     Dosage: 1000 MG/M2, CYCLIC, CYCLE 1, 30 MINUTES ON DAYS 1, 8, 15 OF EACH 28 DAY CYCLE
     Route: 042
     Dates: start: 20061103

REACTIONS (1)
  - Vascular access complication [Unknown]

NARRATIVE: CASE EVENT DATE: 20070316
